FAERS Safety Report 4407948-2 (Version None)
Quarter: 2004Q3

REPORT INFORMATION
  Report Type: 
  Country: None (occurrence: None)
  Receive Date: 20040716
  Receipt Date: 20040705
  Transmission Date: 20050211
  Serious: No
  Sender: FDA-Public Use
  Company Number: 2004PK01032

PATIENT
  Age: 68 Year
  Sex: Female

DRUGS (4)
  1. IRESSA [Suspect]
     Indication: NON-SMALL CELL LUNG CANCER
     Dosage: 250 MG DAILY PO
     Route: 048
     Dates: start: 20031105, end: 20040324
  2. IRESSA [Suspect]
     Indication: NON-SMALL CELL LUNG CANCER
     Dosage: 250 MG DAILY PO
     Route: 048
     Dates: start: 20040421
  3. DYTIDE H [Concomitant]
  4. METOPROLOL TARTRATE [Concomitant]

REACTIONS (1)
  - HEPATIC ENZYME INCREASED [None]
